FAERS Safety Report 5637199-5 (Version None)
Quarter: 2008Q1

REPORT INFORMATION
  Report Type: 
  Country: None (occurrence: None)
  Receive Date: 20080225
  Receipt Date: 20080215
  Transmission Date: 20080703
  Serious: Yes (Other)
  Sender: FDA-Public Use
  Company Number: US-ALLERGAN-0801924US

PATIENT
  Sex: Female
  Weight: 80.726 kg

DRUGS (17)
  1. BOTOX [Suspect]
     Indication: MIGRAINE
     Dosage: 100 UNITS, SINGLE
     Route: 030
     Dates: start: 20070424, end: 20070424
  2. BOTOX [Suspect]
     Dosage: 100 UNITS, SINGLE
     Route: 030
     Dates: start: 20070725, end: 20070725
  3. BOTOX [Suspect]
     Dosage: 100 UNITS, SINGLE
     Route: 030
     Dates: start: 20071030, end: 20071030
  4. BOTOX [Suspect]
     Dosage: 100 UNITS, SINGLE
     Route: 030
     Dates: start: 20080124, end: 20080124
  5. PAMELOR [Concomitant]
     Indication: PROPHYLAXIS
     Dosage: 75 MG, QAM
     Dates: end: 20070501
  6. PAMELOR [Concomitant]
     Indication: HEADACHE
     Dosage: 25 MG, QD
     Dates: start: 20070501
  7. MAXALT [Concomitant]
     Indication: HEADACHE
     Dosage: 10 MG, PRN
  8. NAPROXEN [Concomitant]
     Indication: HEADACHE
     Dosage: 500 MG, PRN
  9. SYNTHROID [Concomitant]
     Dosage: 75 UG, QOD
  10. SYNTHROID [Concomitant]
     Dosage: 50 UG, QOD
  11. LORAZEPAM [Concomitant]
     Dosage: UNK, PRN
  12. ATENOLOL [Concomitant]
     Indication: PALPITATIONS
     Dosage: 100 MG, UNK
  13. LEXAPRO [Concomitant]
     Dosage: 10 MG, QD
     Dates: start: 20070501
  14. LEXAPRO [Concomitant]
     Dosage: 50 MG, UNK
  15. FROVA [Concomitant]
  16. MIRCETTE [Concomitant]
     Indication: ORAL CONTRACEPTION
  17. KLONOPIN [Concomitant]
     Dosage: 0.25 MG, QD

REACTIONS (8)
  - HEADACHE [None]
  - HYPOAESTHESIA [None]
  - INFLUENZA LIKE ILLNESS [None]
  - MUSCULAR WEAKNESS [None]
  - MUSCULOSKELETAL PAIN [None]
  - NECK PAIN [None]
  - PARAESTHESIA [None]
  - SENSATION OF HEAVINESS [None]
